FAERS Safety Report 26169412 (Version 1)
Quarter: 2025Q4

REPORT INFORMATION
  Report Type: Spontaneous
  Country: US (occurrence: None)
  Receive Date: 20251217
  Receipt Date: 20251217
  Transmission Date: 20260118
  Serious: Yes (Hospitalization)
  Sender: FDA-CTU
  Company Number: None

PATIENT
  Age: 80 Year
  Sex: Male

DRUGS (2)
  1. FUROSEMIDE [Suspect]
     Active Substance: FUROSEMIDE
     Indication: Cardiac failure congestive
     Dosage: TAKE ONE TABLET BY MOUTH TWICE A DAY FOR FLUID BUILDUP *NEW ?DOSE*
     Route: 048
     Dates: start: 20250107, end: 20250521
  2. APIXABAN [Suspect]
     Active Substance: APIXABAN

REACTIONS (4)
  - Hypokalaemia [None]
  - Cardiac failure congestive [None]
  - Acute kidney injury [None]
  - Congestive hepatopathy [None]

NARRATIVE: CASE EVENT DATE: 20250608
